FAERS Safety Report 10025617 (Version 1)
Quarter: 2014Q1

REPORT INFORMATION
  Report Type: Spontaneous
  Country: US (occurrence: None)
  Receive Date: 20140319
  Receipt Date: 20140319
  Transmission Date: 20141002
  Serious: Yes (Life-Threatening)
  Sender: FDA-Public Use
  Company Number: None

PATIENT
  Age: 86 Year
  Sex: Male
  Weight: 74.8 kg

DRUGS (8)
  1. XARELTO [Suspect]
     Indication: DEEP VEIN THROMBOSIS
     Dosage: 1 TAB QD ORAL
     Route: 048
     Dates: start: 20131207, end: 20140314
  2. XARELTO [Suspect]
     Indication: ATRIAL FIBRILLATION
     Dosage: 1 TAB QD ORAL
     Route: 048
     Dates: start: 20131207, end: 20140314
  3. TYLENOL ARTHRITIS [Concomitant]
  4. SIMVASTATIN [Concomitant]
  5. LASIX [Concomitant]
  6. JANUVIA [Concomitant]
  7. INSULIN [Concomitant]
  8. DIGOXIN [Concomitant]

REACTIONS (3)
  - Fall [None]
  - Lethargy [None]
  - Asthenia [None]
